FAERS Safety Report 5828943-2 (Version None)
Quarter: 2008Q3

REPORT INFORMATION
  Report Type: 
  Country: None (occurrence: None)
  Receive Date: 20080731
  Receipt Date: 20080428
  Transmission Date: 20090109
  Serious: No
  Sender: FDA-Public Use
  Company Number: US-BAYER-200812010BCC

PATIENT
  Age: 78 Year
  Sex: Male
  Weight: 82 kg

DRUGS (5)
  1. ALEVE [Suspect]
     Indication: ARTHRALGIA
     Dosage: AS USED: 440 MG  UNIT DOSE: 220 MG
     Route: 048
     Dates: start: 20080301, end: 20080428
  2. CYNAPRIL [Concomitant]
  3. PRAVASTATIN [Concomitant]
  4. ATENOLOL [Concomitant]
  5. DOXAZOSIN MESYLATE [Concomitant]

REACTIONS (1)
  - ARTHRALGIA [None]
